FAERS Safety Report 10336659 (Version 2)
Quarter: 2014Q3

REPORT INFORMATION
  Report Type: Report from Study
  Country: DE (occurrence: DE)
  Receive Date: 20140723
  Receipt Date: 20140723
  Transmission Date: 20150326
  Serious: Yes (Life-Threatening, Hospitalization, Other)
  Sender: FDA-Public Use
  Company Number: DE-PFIZER INC-2014192607

PATIENT
  Age: 23 Year
  Sex: Male
  Weight: 80 kg

DRUGS (2)
  1. CITALOPRAM [Concomitant]
     Active Substance: CITALOPRAM HYDROBROMIDE
     Indication: DEPRESSION
     Dosage: UNK
     Route: 048
     Dates: start: 201403
  2. TEMSIROLIMUS [Suspect]
     Active Substance: TEMSIROLIMUS
     Dosage: 75 MG, WEEKLY
     Dates: start: 20140317

REACTIONS (1)
  - Somnolence [Recovered/Resolved]

NARRATIVE: CASE EVENT DATE: 20140709
